FAERS Safety Report 7321062-8 (Version None)
Quarter: 2011Q1

REPORT INFORMATION
  Report Type: 
  Country: None (occurrence: None)
  Receive Date: 20110228
  Receipt Date: 20110223
  Transmission Date: 20110831
  Serious: Yes (Death, Life-Threatening, Hospitalization, Other)
  Sender: FDA-Public Use
  Company Number: TW-CELGENEUS-153-C5013-10120759

PATIENT
  Sex: Male
  Weight: 56.2 kg

DRUGS (179)
  1. ZINC OXIDE [Concomitant]
     Route: 062
     Dates: start: 20101201
  2. BONEFOS [Concomitant]
     Dosage: 800 MILLIGRAM
     Route: 048
     Dates: start: 20101025, end: 20101124
  3. AUGMENTIN '125' [Concomitant]
     Dosage: 3600 MILLIGRAM
     Route: 051
     Dates: start: 20101117, end: 20101117
  4. NORVASC [Concomitant]
     Dosage: 5 MILLIGRAM
     Route: 048
     Dates: start: 20101111, end: 20101124
  5. SEROQUEL [Concomitant]
     Dosage: 25 MILLIGRAM
     Route: 048
     Dates: start: 20101113, end: 20101115
  6. SEROQUEL [Concomitant]
     Dosage: 25 MILLIGRAM
     Route: 065
     Dates: start: 20101127, end: 20101127
  7. ALLERMIN [Concomitant]
     Dosage: 5 MILLIGRAM/MILLILITERS
     Route: 051
     Dates: start: 20101128, end: 20101129
  8. LASIX [Concomitant]
     Dosage: 20 DOSAGE FORMS
     Route: 051
     Dates: start: 20101124, end: 20101124
  9. HUMULIN R [Concomitant]
     Dosage: 40 IU (INTERNATIONAL UNIT)
     Route: 051
     Dates: start: 20101125, end: 20101126
  10. HUMULIN R [Concomitant]
     Dosage: 25 IU (INTERNATIONAL UNIT)
     Route: 051
     Dates: start: 20101201, end: 20101202
  11. HUMULIN R [Concomitant]
     Dosage: 25 IU (INTERNATIONAL UNIT)
     Route: 051
     Dates: start: 20101203, end: 20101204
  12. HUMULIN R [Concomitant]
     Dosage: 18 IU (INTERNATIONAL UNIT)
     Route: 051
     Dates: start: 20101204, end: 20101204
  13. DORMICUM [Concomitant]
     Dosage: 24 DOSAGE FORMS
     Route: 051
     Dates: start: 20101204, end: 20101204
  14. LEVOPHED [Concomitant]
     Dosage: 2 DOSAGE FORMS
     Route: 051
     Dates: start: 20101124, end: 20101125
  15. NS [Concomitant]
     Dosage: 100 MILLILITER
     Route: 041
     Dates: start: 20101124, end: 20101125
  16. HEPARIN [Concomitant]
     Route: 051
     Dates: start: 20101206
  17. NEXIUM [Concomitant]
     Dosage: 80 MILLIGRAM
     Route: 051
     Dates: start: 20101125, end: 20101125
  18. NEXIUM [Concomitant]
     Dosage: 80 MILLIGRAM
     Route: 051
     Dates: start: 20101125, end: 20101127
  19. DEXTROSE [Concomitant]
     Dosage: 500 OTHER
     Route: 041
     Dates: start: 20101125, end: 20101126
  20. AMIYU [Concomitant]
     Dosage: 1 DOSAGE FORMS
     Route: 041
     Dates: start: 20101125, end: 20101130
  21. MOPRIDE FC [Concomitant]
     Dosage: 15 MILLIGRAM
     Route: 065
     Dates: start: 20101201, end: 20101201
  22. CALOWLIN [Concomitant]
     Dosage: 2001 MILLIGRAM
     Route: 065
     Dates: start: 20101205
  23. LIPOFUNDIN [Concomitant]
     Indication: PROPHYLAXIS
     Route: 041
     Dates: start: 20101204
  24. PLATELETS [Concomitant]
     Indication: THROMBOCYTOPENIA
     Route: 065
     Dates: start: 20101125, end: 20101125
  25. DULCOLAX [Concomitant]
     Dosage: 10 MILLIGRAM
     Route: 048
     Dates: start: 20101022, end: 20101122
  26. ULTRACET [Concomitant]
     Dosage: 3 TABLET
     Route: 048
     Dates: start: 20101022, end: 20101113
  27. ZINC OXIDE [Concomitant]
     Route: 062
     Dates: start: 20101022, end: 20101112
  28. NINCORT [Concomitant]
     Route: 065
     Dates: start: 20101101, end: 20101112
  29. SODIUM CHLORIDE [Concomitant]
     Dosage: 1000 OTHER
     Route: 041
     Dates: start: 20101110, end: 20101112
  30. TRAMADOL HCL [Concomitant]
     Dosage: 4 CAPSULE
     Route: 065
     Dates: start: 20101128
  31. ALLERMIN [Concomitant]
     Dosage: 5 MILLIGRAM/MILLILITERS
     Route: 051
     Dates: start: 20101126, end: 20101127
  32. ALLERMIN [Concomitant]
     Dosage: 5 MILLIGRAM/MILLILITERS
     Route: 051
     Dates: start: 20101203, end: 20101204
  33. ALLERMIN [Concomitant]
     Dosage: 5 MILLIGRAM/MILLILITERS
     Route: 051
     Dates: start: 20101205, end: 20101206
  34. SMOFLIPID [Concomitant]
     Dosage: 1 DOSAGE FORMS
     Route: 041
     Dates: start: 20101116, end: 20101117
  35. SMOFLIPID [Concomitant]
     Dosage: 1 DOSAGE FORMS
     Route: 041
     Dates: start: 20101201, end: 20101204
  36. LASIX [Concomitant]
     Dosage: 1 DOSAGE FORMS
     Route: 051
     Dates: start: 20101120, end: 20101121
  37. DORMICUM [Concomitant]
     Dosage: 5 DOSAGE FORMS
     Route: 051
     Dates: start: 20101127, end: 20101129
  38. DORMICUM [Concomitant]
     Dosage: .5 DOSAGE FORMS
     Route: 051
     Dates: start: 20101201, end: 20101202
  39. LEVOPHED [Concomitant]
     Dosage: 2 DOSAGE FORMS
     Route: 051
     Dates: start: 20101202, end: 20101202
  40. HEPARIN [Concomitant]
     Route: 051
     Dates: start: 20101124, end: 20101125
  41. DEXTROSE [Concomitant]
     Dosage: 500 OTHER
     Route: 041
     Dates: start: 20101125, end: 20101125
  42. TRAMAL [Concomitant]
     Dosage: 100 MILLIGRAM
     Route: 051
     Dates: start: 20101125, end: 20101126
  43. DEXTROSE 5% [Concomitant]
     Dosage: 250 OTHER
     Route: 041
     Dates: start: 20101207, end: 20101207
  44. CC-5013 [Suspect]
     Indication: MULTIPLE MYELOMA
     Dosage: 15 MILLIGRAM
     Route: 048
     Dates: start: 20101116, end: 20101207
  45. ULTRACET [Concomitant]
     Dosage: 4 TABLET
     Route: 065
     Dates: start: 20101124, end: 20101124
  46. AUGMENTIN '125' [Concomitant]
     Dosage: 2400 MILLIGRAM
     Route: 051
     Dates: start: 20101117, end: 20101117
  47. ALLERMIN [Concomitant]
     Dosage: 5 MILLIGRAM/MILLILITERS
     Route: 051
     Dates: start: 20101115, end: 20101116
  48. ALLERMIN [Concomitant]
     Dosage: 5 MILLIGRAM/MILLILITERS
     Route: 051
     Dates: start: 20101123, end: 20101124
  49. ALLERMIN [Concomitant]
     Dosage: 1 DOSAGE FORMS
     Route: 051
     Dates: start: 20101125, end: 20101126
  50. ALLERMIN [Concomitant]
     Dosage: 5 MILLIGRAM/MILLILITERS
     Route: 051
     Dates: start: 20101125, end: 20101126
  51. GLYCAL-AMIN [Concomitant]
     Dosage: 1 DOSAGE FORMS
     Route: 041
     Dates: start: 20101118, end: 20101123
  52. SMOFLIPID [Concomitant]
     Dosage: 1 DOSAGE FORMS
     Route: 041
     Dates: start: 20101201, end: 20101202
  53. ASPIRIN [Concomitant]
     Dosage: 1 TABLET
     Route: 048
     Dates: start: 20101116, end: 20101123
  54. LASIX [Concomitant]
     Dosage: 24 DOSAGE FORMS
     Route: 051
     Dates: start: 20101124, end: 20101124
  55. CALGLON [Concomitant]
     Dosage: 2 DOSAGE FORMS
     Route: 051
     Dates: start: 20101124, end: 20101125
  56. MORPHINE HCL ELIXIR [Concomitant]
     Dosage: 5 MILLIGRAM
     Route: 051
     Dates: start: 20101130, end: 20101201
  57. HUMULIN R [Concomitant]
     Dosage: 50 IU (INTERNATIONAL UNIT)
     Route: 051
     Dates: start: 20101125, end: 20101125
  58. HUMULIN R [Concomitant]
     Dosage: 40 IU (INTERNATIONAL UNIT)
     Route: 051
     Dates: start: 20101129, end: 20101201
  59. HUMULIN R [Concomitant]
     Dosage: 30 IU (INTERNATIONAL UNIT)
     Route: 051
     Dates: start: 20101201, end: 20101201
  60. HUMULIN R [Concomitant]
     Dosage: 25 IU (INTERNATIONAL UNIT)
     Route: 058
     Dates: start: 20101201, end: 20101202
  61. HUMULIN R [Concomitant]
     Dosage: 10 IU (INTERNATIONAL UNIT)
     Route: 051
     Dates: start: 20101206, end: 20101206
  62. DUASMA [Concomitant]
     Route: 055
     Dates: start: 20101125, end: 20101207
  63. HERBESSER [Concomitant]
     Dosage: 30 UNKNOWN
     Route: 065
     Dates: start: 20101127, end: 20101127
  64. HERBESSER [Concomitant]
     Dosage: 60 UNKNOWN
     Route: 065
     Dates: start: 20101128, end: 20101128
  65. LACTUL [Concomitant]
     Indication: PROPHYLAXIS
     Route: 065
     Dates: start: 20101129, end: 20101201
  66. DEXTROSE 5% [Concomitant]
     Dosage: 250 OTHER
     Route: 041
     Dates: start: 20101202, end: 20101202
  67. CALOWLIN [Concomitant]
     Dosage: 2001 MILLIGRAM
     Route: 048
     Dates: start: 20101202, end: 20101202
  68. PRIMPERAN TAB [Concomitant]
     Dosage: 3 DOSAGE FORMS
     Route: 051
     Dates: start: 20101122, end: 20101124
  69. TRANSAMIN [Concomitant]
     Dosage: 3 DOSAGE FORMS
     Route: 051
     Dates: start: 20101203, end: 20101206
  70. SMOFLIPID [Concomitant]
     Dosage: 1 DOSAGE FORMS
     Route: 041
     Dates: start: 20101125, end: 20101125
  71. NAPROXEN [Concomitant]
     Dosage: 1 TABLET
     Route: 048
     Dates: start: 20101120, end: 20101121
  72. LASIX [Concomitant]
     Dosage: 1 DOSAGE FORMS
     Route: 051
     Dates: start: 20101123, end: 20101124
  73. HUMULIN R [Concomitant]
     Dosage: 40 IU (INTERNATIONAL UNIT)
     Route: 058
     Dates: start: 20101125, end: 20101126
  74. HUMULIN R [Concomitant]
     Dosage: 35 IU (INTERNATIONAL UNIT)
     Route: 051
     Dates: start: 20101126, end: 20101129
  75. HUMULIN R [Concomitant]
     Dosage: 28 IU (INTERNATIONAL UNIT)
     Route: 051
     Dates: start: 20101202, end: 20101203
  76. DORMICUM [Concomitant]
     Dosage: 12 DOSAGE FORMS
     Route: 051
     Dates: start: 20101125, end: 20101125
  77. DORMICUM [Concomitant]
     Route: 051
     Dates: start: 20101205, end: 20101206
  78. LEVOPHED [Concomitant]
     Dosage: 2 DOSAGE FORMS
     Route: 051
     Dates: start: 20101202, end: 20101203
  79. NS [Concomitant]
     Dosage: 250 MILLILITER
     Route: 041
     Dates: start: 20101124, end: 20101125
  80. DEXTROSE [Concomitant]
     Dosage: 50 OTHER
     Route: 041
     Dates: start: 20101201, end: 20101202
  81. DEXTROSE [Concomitant]
     Dosage: 50 OTHER
     Route: 041
     Dates: start: 20101201, end: 20101202
  82. CALCIUM GLUCONATE [Concomitant]
     Dosage: 3 DOSAGE FORMS
     Route: 051
     Dates: start: 20101125, end: 20101125
  83. AMIYU [Concomitant]
     Dosage: 1 DOSAGE FORMS
     Route: 041
     Dates: start: 20101125, end: 20101127
  84. HERBESSER [Concomitant]
     Dosage: 120 UNKNOWN
     Route: 065
     Dates: start: 20101130, end: 20101201
  85. MOSAPRIDE CITRATE [Concomitant]
     Dosage: 3 TABLET
     Route: 065
     Dates: start: 20101130, end: 20101201
  86. DEXTROSE 5% [Concomitant]
     Dosage: 250 OTHER
     Route: 041
     Dates: start: 20101201, end: 20101202
  87. CALOWLIN [Concomitant]
     Dosage: 2001 MILLIGRAM
     Route: 065
     Dates: start: 20101202, end: 20101205
  88. SCANOL [Concomitant]
     Dosage: 2000 MILLIGRAM
     Route: 065
     Dates: start: 20101124, end: 20101207
  89. SCANOL [Concomitant]
     Dosage: 2000 MILLIGRAM
     Route: 065
     Dates: start: 20101124, end: 20101207
  90. AUGMENTIN '125' [Concomitant]
     Dosage: 2400 MILLIGRAM
     Route: 051
     Dates: start: 20101106, end: 20101115
  91. MEGESTROL ACETATE [Concomitant]
     Dosage: 40 MILLIGRAM
     Route: 048
     Dates: start: 20101108, end: 20101124
  92. ATIVAN [Concomitant]
     Dosage: .5 MILLIGRAM
     Route: 048
     Dates: start: 20101110, end: 20101111
  93. TRAMADOL HCL [Concomitant]
     Dosage: 2 UNKNOWN
     Route: 051
     Dates: start: 20101113, end: 20101124
  94. ALLERMIN [Concomitant]
     Dosage: 5 MILLIGRAM/MILLILITERS
     Route: 051
     Dates: start: 20101125, end: 20101126
  95. ALLERMIN [Concomitant]
     Dosage: 5 MILLIGRAM/MILLILITERS
     Route: 051
     Dates: start: 20101129, end: 20101130
  96. ALLERMIN [Concomitant]
     Dosage: 1 DOSAGE FORMS
     Route: 051
     Dates: start: 20101204, end: 20101205
  97. MORPHINE HCL ELIXIR [Concomitant]
     Dosage: 20 MILLIGRAM
     Route: 051
     Dates: start: 20101125, end: 20101126
  98. HUMULIN R [Concomitant]
     Dosage: 50 IU (INTERNATIONAL UNIT)
     Route: 051
     Dates: start: 20101125, end: 20101126
  99. HUMULIN R [Concomitant]
     Dosage: 10 IU (INTERNATIONAL UNIT)
     Route: 051
     Dates: start: 20101206
  100. DORMICUM [Concomitant]
     Dosage: 16 DOSAGE FORMS
     Route: 051
     Dates: start: 20101125, end: 20101125
  101. DORMICUM [Concomitant]
     Dosage: 24 DOSAGE FORMS
     Route: 051
     Dates: start: 20101125, end: 20101127
  102. LEVOPHED [Concomitant]
     Dosage: 2 DOSAGE FORMS
     Route: 051
     Dates: start: 20101126, end: 20101127
  103. LEVOPHED [Concomitant]
     Dosage: 2 DOSAGE FORMS
     Route: 051
     Dates: start: 20101202, end: 20101205
  104. HEPARIN [Concomitant]
     Route: 051
     Dates: start: 20101126, end: 20101130
  105. DEXTROSE [Concomitant]
     Dosage: 500 UNKNOWN
     Route: 041
     Dates: start: 20101125, end: 20101126
  106. DEXTROSE [Concomitant]
     Dosage: 2 DOSAGE FORMS
     Route: 041
     Dates: start: 20101204, end: 20101205
  107. HERBESSER [Concomitant]
     Dosage: 90 UNKNOWN
     Route: 065
     Dates: start: 20101127, end: 20101128
  108. ROLIKAN [Concomitant]
     Route: 041
     Dates: start: 20101203, end: 20101205
  109. ULTRACET [Concomitant]
     Dosage: 8
     Route: 048
     Dates: start: 20101113, end: 20101124
  110. PRIMPERAN TAB [Concomitant]
     Dosage: 1 DOSAGE FORMS
     Route: 051
     Dates: start: 20101122, end: 20101123
  111. PRIMPERAN TAB [Concomitant]
     Dosage: 3 DOSAGE FORMS
     Route: 051
     Dates: start: 20101201, end: 20101201
  112. GLYCAL-AMIN [Concomitant]
     Dosage: 1 OTHER
     Route: 041
     Dates: start: 20101116, end: 20101118
  113. PISUTAM [Concomitant]
     Dosage: 6.75 GRAM
     Route: 051
     Dates: start: 20101117, end: 20101124
  114. CALGLON [Concomitant]
     Dosage: 2 DOSAGE FORMS
     Route: 051
     Dates: start: 20101124, end: 20101125
  115. HUMULIN R [Concomitant]
     Dosage: 8 IU (INTERNATIONAL UNIT)
     Route: 058
     Dates: start: 20101124, end: 20101125
  116. HUMULIN R [Concomitant]
     Dosage: 15 IU (INTERNATIONAL UNIT)
     Route: 051
     Dates: start: 20101206
  117. HUMULIN R [Concomitant]
     Dosage: 10 IU (INTERNATIONAL UNIT)
     Route: 058
     Dates: start: 20101206
  118. DORMICUM [Concomitant]
     Dosage: 12 DOSAGE FORMS
     Route: 051
     Dates: start: 20101124, end: 20101125
  119. DORMICUM [Concomitant]
     Dosage: 5 MILLIGRAM
     Route: 051
     Dates: start: 20101204, end: 20101204
  120. DORMICUM [Concomitant]
     Dosage: 24 DOSAGE FORMS
     Route: 051
     Dates: start: 20101204, end: 20101205
  121. LEVOPHED [Concomitant]
     Dosage: 2 DOSAGE FORMS
     Route: 051
     Dates: start: 20101201, end: 20101202
  122. NEXIUM [Concomitant]
     Dosage: 40 MILLIGRAM
     Route: 065
     Dates: start: 20101127
  123. DEXTROSE [Concomitant]
     Dosage: 500 OTHER
     Route: 041
     Dates: start: 20101125, end: 20101126
  124. AMIYU [Concomitant]
     Dosage: 200 MILLILITER
     Route: 041
     Dates: start: 20101130, end: 20101202
  125. AMIYU [Concomitant]
     Dosage: 1440 DOSAGE FORMS
     Route: 041
     Dates: start: 20101202
  126. TRAMAL [Concomitant]
     Dosage: 1.5 DOSAGE FORMS
     Route: 051
     Dates: start: 20101125, end: 20101125
  127. HERBESSER [Concomitant]
     Indication: HYPERTENSION
     Dosage: 10 MILLIGRAM
     Route: 051
     Dates: start: 20101125, end: 20101126
  128. HERBESSER [Concomitant]
     Dosage: 15 MILLIGRAM
     Route: 051
     Dates: start: 20101201, end: 20101202
  129. HERBESSER [Concomitant]
     Dosage: 10 MILLIGRAM
     Route: 051
     Dates: start: 20101206, end: 20101206
  130. HIRUDOID [Concomitant]
     Route: 062
     Dates: start: 20101126, end: 20101207
  131. ROLIKAN [Concomitant]
     Route: 041
     Dates: start: 20101202, end: 20101203
  132. DEXAMETHASONE [Suspect]
     Indication: MULTIPLE MYELOMA
     Dosage: 20 MILLIGRAM
     Route: 065
     Dates: start: 20101116, end: 20101207
  133. SCANOL [Concomitant]
     Dosage: 2000 MILLIGRAM
     Route: 048
     Dates: start: 20101106, end: 20101117
  134. SCANOL [Concomitant]
     Dosage: 2000 MILLIGRAM
     Route: 048
     Dates: start: 20101120, end: 20101124
  135. AUGMENTIN '125' [Concomitant]
     Dosage: 1200 MILLIGRAM
     Route: 051
     Dates: start: 20101116, end: 20101117
  136. STILNOX [Concomitant]
     Dosage: 6.2 UNKNOWN
     Route: 048
     Dates: start: 20101111, end: 20101113
  137. ALLERMIN [Concomitant]
     Dosage: 5 MILLIGRAM/MILLILITERS
     Route: 051
     Dates: start: 20101127, end: 20101128
  138. ALLERMIN [Concomitant]
     Dosage: 1 DOSAGE FORMS
     Route: 051
     Dates: start: 20101202, end: 20101203
  139. GLYCAL-AMIN [Concomitant]
     Route: 041
     Dates: start: 20101116, end: 20101117
  140. LASIX [Concomitant]
     Dosage: 1 DOSAGE FORMS
     Route: 051
     Dates: start: 20101123, end: 20101124
  141. MORPHINE HCL ELIXIR [Concomitant]
     Dosage: 20 MILLIGRAM
     Route: 051
     Dates: start: 20101125, end: 20101126
  142. HUMULIN R [Concomitant]
     Dosage: 4 IU (INTERNATIONAL UNIT)
     Route: 058
     Dates: start: 20101205, end: 20101206
  143. HUMULIN R [Concomitant]
     Dosage: 10 IU (INTERNATIONAL UNIT)
     Route: 051
     Dates: start: 20101206, end: 20101206
  144. DORMICUM [Concomitant]
     Dosage: 2 DOSAGE FORMS
     Route: 051
     Dates: start: 20101124, end: 20101125
  145. DORMICUM [Concomitant]
     Dosage: 5 MILLIGRAM
     Route: 051
     Dates: start: 20101203, end: 20101204
  146. DORMICUM [Concomitant]
     Route: 051
     Dates: start: 20101203, end: 20101204
  147. DORMICUM [Concomitant]
     Dosage: 48 DOSAGE FORMS
     Route: 051
     Dates: start: 20101206
  148. LEVOPHED [Concomitant]
     Dosage: 2 DOSAGE FORMS
     Route: 051
     Dates: start: 20101129, end: 20101130
  149. LEVOPHED [Concomitant]
     Dosage: 4 DOSAGE FORMS
     Route: 051
     Dates: start: 20101205
  150. DDAVP [Concomitant]
     Dosage: 4 DOSAGE FORMS
     Route: 051
     Dates: start: 20101124, end: 20101125
  151. LACTUL [Concomitant]
     Route: 065
     Dates: start: 20101201, end: 20101203
  152. EVAC ENEMA [Concomitant]
     Route: 054
     Dates: start: 20101129
  153. SENOKOT [Concomitant]
     Dosage: 15 MILLIGRAM
     Route: 065
     Dates: start: 20101130, end: 20101130
  154. KAOPECTIN [Concomitant]
     Dosage: 4 DOSAGE FORMS
     Route: 065
     Dates: start: 20101203, end: 20101206
  155. NOVONORM [Concomitant]
     Dosage: 2 MILLIGRAM
     Route: 048
     Dates: start: 20101022, end: 20101122
  156. BONEFOS [Concomitant]
     Dosage: 800 MILLIGRAM
     Route: 065
     Dates: start: 20101124, end: 20101124
  157. PRIMPERAN TAB [Concomitant]
     Dosage: 15 MILLIGRAM
     Route: 048
     Dates: start: 20101101, end: 20101101
  158. PRIMPERAN TAB [Concomitant]
     Dosage: 30 MILLIGRAM
     Route: 051
     Dates: start: 20101128, end: 20101201
  159. MEGESTROL ACETATE [Concomitant]
     Dosage: 40 MILLIGRAM
     Route: 065
     Dates: start: 20101124, end: 20101124
  160. TRANSAMIN [Concomitant]
     Dosage: 500 MILLIGRAM
     Route: 051
     Dates: start: 20101108, end: 20101110
  161. NORVASC [Concomitant]
     Dosage: 10 MILLIGRAM
     Route: 065
     Dates: start: 20101130, end: 20101201
  162. ALLERMIN [Concomitant]
     Dosage: 1 DOSAGE FORMS
     Route: 051
     Dates: start: 20101124, end: 20101125
  163. GLYCAL-AMIN [Concomitant]
     Dosage: 1 DOSAGE FORMS
     Route: 041
     Dates: start: 20101116, end: 20101116
  164. SMOFLIPID [Concomitant]
     Dosage: 1 DOSAGE FORMS
     Route: 041
     Dates: start: 20101116, end: 20101118
  165. SMOFLIPID [Concomitant]
     Dosage: 1 DOSAGE FORMS
     Route: 041
     Dates: start: 20101118, end: 20101123
  166. PISUTAM [Concomitant]
     Dosage: 2.25 GRAM
     Route: 051
     Dates: start: 20101117, end: 20101118
  167. MORPHINE HCL ELIXIR [Concomitant]
     Dosage: 3 MILLIGRAM
     Route: 051
     Dates: start: 20101124, end: 20101125
  168. MORPHINE HCL ELIXIR [Concomitant]
     Dosage: 20 MILLIGRAM
     Route: 051
     Dates: start: 20101125, end: 20101128
  169. MORPHINE HCL ELIXIR [Concomitant]
     Dosage: 4 TABLET
     Route: 065
     Dates: start: 20101130, end: 20101204
  170. HUMULIN R [Concomitant]
     Dosage: 20 IU (INTERNATIONAL UNIT)
     Route: 051
     Dates: start: 20101124, end: 20101125
  171. DORMICUM [Concomitant]
     Dosage: 16 DOSAGE FORMS
     Route: 051
     Dates: start: 20101125, end: 20101125
  172. HEPARIN [Concomitant]
     Route: 051
     Dates: start: 20101125, end: 20101201
  173. DEXTROSE [Concomitant]
     Dosage: 500 UNKNOWN
     Route: 041
     Dates: start: 20101126, end: 20101207
  174. DEXTROSE [Concomitant]
     Dosage: 2 DOSAGE FORMS
     Route: 041
     Dates: start: 20101201, end: 20101202
  175. DEXTROSE [Concomitant]
     Dosage: 2 DOSAGE FORMS
     Route: 041
     Dates: start: 20101204, end: 20101205
  176. DEXTROSE [Concomitant]
     Dosage: 500 OTHER
     Route: 041
     Dates: start: 20101204, end: 20101205
  177. METRONIDAZOLE [Concomitant]
     Dosage: 3 TABLET
     Route: 048
     Dates: start: 20101203, end: 20101203
  178. RED BLOOD CELLS [Concomitant]
     Route: 065
     Dates: start: 20101125, end: 20101125
  179. RED BLOOD CELLS [Concomitant]
     Route: 065
     Dates: start: 20101123, end: 20101123

REACTIONS (10)
  - SEPTIC SHOCK [None]
  - PROSTATE CANCER [None]
  - SEPSIS [None]
  - DISSEMINATED INTRAVASCULAR COAGULATION [None]
  - RESPIRATORY FAILURE [None]
  - HYPOKALAEMIA [None]
  - PNEUMONIA [None]
  - METABOLIC ACIDOSIS [None]
  - HYPONATRAEMIA [None]
  - RENAL IMPAIRMENT [None]
